FAERS Safety Report 8494555-8 (Version None)
Quarter: 2012Q3

REPORT INFORMATION
  Report Type: 
  Country: None (occurrence: None)
  Receive Date: 20120709
  Receipt Date: 20120705
  Transmission Date: 20120928
  Serious: Yes (Hospitalization)
  Sender: FDA-Public Use
  Company Number: PHHY2012AR058042

PATIENT
  Sex: Female

DRUGS (1)
  1. DIOVAN [Suspect]
     Indication: HYPERTENSION
     Dosage: 160 MG, DAILY

REACTIONS (5)
  - BLOOD PRESSURE INCREASED [None]
  - FOOT FRACTURE [None]
  - NERVOUSNESS [None]
  - FALL [None]
  - ANKLE FRACTURE [None]
